FAERS Safety Report 10203908 (Version 1)
Quarter: 2014Q2

REPORT INFORMATION
  Report Type: Report from Study
  Country: US (occurrence: US)
  Receive Date: 20140529
  Receipt Date: 20140529
  Transmission Date: 20141212
  Serious: Yes (Other)
  Sender: FDA-Public Use
  Company Number: US-JNJFOC-20140511312

PATIENT
  Age: 45 Year
  Sex: Female
  Weight: 89.36 kg

DRUGS (14)
  1. REMICADE [Suspect]
     Indication: SARCOIDOSIS
     Route: 042
  2. REMICADE [Suspect]
     Indication: SARCOIDOSIS
     Route: 042
  3. FENTANYL PATCH [Concomitant]
     Indication: PAIN
     Route: 062
  4. LEVEMIR [Concomitant]
     Indication: DIABETES MELLITUS
     Route: 058
  5. POTASSIUM [Concomitant]
     Route: 048
  6. TRILIPIX [Concomitant]
     Indication: BLOOD TRIGLYCERIDES INCREASED
     Route: 048
  7. CRESTOR [Concomitant]
     Indication: BLOOD CHOLESTEROL INCREASED
     Route: 048
  8. PREDNISONE [Concomitant]
     Indication: SARCOIDOSIS
     Route: 048
  9. OXYCODONE [Concomitant]
     Indication: PAIN
     Route: 048
  10. NEXIUM [Concomitant]
     Route: 048
  11. FOLIC ACID [Concomitant]
     Route: 048
  12. FUROSEMIDE [Concomitant]
     Indication: FLUID RETENTION
     Route: 048
  13. SINGULAIR [Concomitant]
     Route: 048
  14. NOVOLOG [Concomitant]
     Indication: DIABETES MELLITUS
     Route: 058

REACTIONS (4)
  - Chest pain [Recovered/Resolved]
  - Arthralgia [Recovered/Resolved]
  - Off label use [Unknown]
  - Gastrointestinal disorder [Recovered/Resolved]
